FAERS Safety Report 12580045 (Version 3)
Quarter: 2017Q2

REPORT INFORMATION
  Report Type: Spontaneous
  Country: US (occurrence: US)
  Receive Date: 20160721
  Receipt Date: 20170411
  Transmission Date: 20170830
  Serious: Yes (Other)
  Sender: FDA-Public Use
  Company Number: US-BAYER-2016-091231

PATIENT
  Age: 35 Year
  Sex: Female

DRUGS (1)
  1. MIRENA [Suspect]
     Active Substance: LEVONORGESTREL
     Dosage: 20 MCG/24HR, CONT
     Route: 015
     Dates: start: 201305, end: 201409

REACTIONS (9)
  - Pelvic pain [Recovered/Resolved]
  - Abdominal pain lower [Recovered/Resolved]
  - Dyspareunia [Recovered/Resolved]
  - Pregnancy with contraceptive device [Recovered/Resolved]
  - Device ineffective [Unknown]
  - Device monitoring procedure not performed [Unknown]
  - Embedded device [Recovered/Resolved]
  - Uterine mass [Unknown]
  - Device use issue [Unknown]

NARRATIVE: CASE EVENT DATE: 2015
